FAERS Safety Report 16663311 (Version 2)
Quarter: 2019Q3

REPORT INFORMATION
  Report Type: Spontaneous
  Country: GB (occurrence: GB)
  Receive Date: 20190802
  Receipt Date: 20190809
  Transmission Date: 20191004
  Serious: Yes (Other)
  Sender: FDA-Public Use
  Company Number: GB-009507513-1811GBR009702

PATIENT
  Age: 35 Year
  Sex: Male
  Weight: 64.5 kg

DRUGS (6)
  1. ALENDRONATE SODIUM. [Suspect]
     Active Substance: ALENDRONATE SODIUM
     Indication: OSTEOPOROSIS
     Dosage: 70 MILLIGRAM, WEEKLY
     Route: 048
  2. ETODOLAC. [Concomitant]
     Active Substance: ETODOLAC
     Dosage: 600 MILLIGRAM
  3. ADALIMUMAB [Concomitant]
     Active Substance: ADALIMUMAB
     Dosage: 40 MILLIGRAM, WEEKLY
  4. ADALIMUMAB [Concomitant]
     Active Substance: ADALIMUMAB
     Indication: ARTHRALGIA
     Dosage: 40 MILLIGRAM, FORTNIGHTLY
  5. LEFLUNOMIDE. [Concomitant]
     Active Substance: LEFLUNOMIDE
     Dosage: 20 MILLIGRAM, ONE TIME PER DAY
  6. PREDNISOLONE. [Concomitant]
     Active Substance: PREDNISOLONE
     Dosage: 15 MILLIGRAM

REACTIONS (3)
  - Product use issue [Unknown]
  - Atypical femur fracture [Recovered/Resolved]
  - Tibia fracture [Recovered/Resolved]
